FAERS Safety Report 7456999-2 (Version None)
Quarter: 2011Q2

REPORT INFORMATION
  Report Type: 
  Country: None (occurrence: None)
  Receive Date: 20110504
  Receipt Date: 20110418
  Transmission Date: 20111010
  Serious: Yes (Hospitalization, Other)
  Sender: FDA-Public Use
  Company Number: US-BAYER-201034651NA

PATIENT
  Age: 16 Year
  Sex: Female
  Weight: 54 kg

DRUGS (10)
  1. YASMIN [Suspect]
     Indication: PRODUCT USED FOR UNKNOWN INDICATION
     Dosage: UNK
     Dates: start: 20010101
  2. FLUTICASONE PROPIONATE [Concomitant]
     Indication: RHINITIS ALLERGIC
     Dosage: 50 ?G SPRAY, 2 SPR./ NOSTRIL DAILY
     Route: 045
     Dates: start: 20080312
  3. IBUPROFEN [Concomitant]
     Indication: ANTIINFLAMMATORY THERAPY
     Dosage: 600 MG, TAB
     Route: 048
     Dates: start: 20070914
  4. YAZ [Suspect]
     Indication: MIGRAINE
  5. TOPAMAX [Concomitant]
     Indication: MIGRAINE PROPHYLAXIS
     Dosage: 75 MG, BID
     Route: 048
     Dates: start: 20070601
  6. BENZONATATE [Concomitant]
     Indication: ANTITUSSIVE THERAPY
     Dosage: 100 MG, CAP
     Route: 048
     Dates: start: 20080815
  7. HYDROCODONE BITARTRATE/HOMATROPINE METHYBROMIDE [Concomitant]
     Indication: ANTITUSSIVE THERAPY
     Dosage: 5-1.5/5 SYRUP
     Route: 048
     Dates: start: 20080827
  8. YAZ [Suspect]
     Indication: MENSTRUATION IRREGULAR
     Dosage: UNK
  9. IMITREX [Concomitant]
  10. HYCODAN [Concomitant]
     Dosage: 5 ML, BID
     Route: 048
     Dates: start: 20080710

REACTIONS (3)
  - DEEP VEIN THROMBOSIS [None]
  - PAIN IN EXTREMITY [None]
  - OEDEMA PERIPHERAL [None]
